FAERS Safety Report 7971832-8 (Version None)
Quarter: 2011Q4

REPORT INFORMATION
  Report Type: 
  Country: None (occurrence: None)
  Receive Date: 20111122
  Receipt Date: 20110706
  Transmission Date: 20120403
  Serious: No
  Sender: FDA-Public Use
  Company Number: PHHY2011US28121

PATIENT
  Age: 39 Year
  Sex: Female

DRUGS (1)
  1. GILENYA [Suspect]
     Indication: MULTIPLE SCLEROSIS
     Dosage: 0.5 MG, QD, ORAL
     Route: 048
     Dates: start: 20110331

REACTIONS (8)
  - MALAISE [None]
  - SENSATION OF HEAVINESS [None]
  - PAIN [None]
  - CHEST PAIN [None]
  - RASH MACULAR [None]
  - BACK PAIN [None]
  - FATIGUE [None]
  - NECK PAIN [None]
